FAERS Safety Report 10396043 (Version 2)
Quarter: 2014Q3

REPORT INFORMATION
  Report Type: Report from Study
  Country: MX (occurrence: MX)
  Receive Date: 20140820
  Receipt Date: 20140901
  Transmission Date: 20150326
  Serious: Yes (Disabling, Other)
  Sender: FDA-Public Use
  Company Number: PHHY2014MX103119

PATIENT
  Age: 67 Year
  Sex: Female

DRUGS (3)
  1. CO-DIOVAN [Suspect]
     Active Substance: HYDROCHLOROTHIAZIDE\VALSARTAN
     Indication: HYPERTENSION
     Dosage: 1 DF (320/25MG) DAILY
     Route: 048
     Dates: start: 2011, end: 20140730
  2. EXFORGE [Suspect]
     Active Substance: AMLODIPINE BESYLATE\VALSARTAN
     Dosage: UNK UKN, UNK
  3. TERFAMEX [Concomitant]
     Indication: WEIGHT CONTROL
     Dosage: 1 UKN, DAILY
     Dates: start: 201402, end: 201407

REACTIONS (10)
  - Face injury [Recovered/Resolved]
  - Mental disorder [Recovered/Resolved]
  - Insomnia [Recovered/Resolved]
  - Spinal disorder [Recovered/Resolved]
  - Abasia [Recovered/Resolved]
  - Nervousness [Recovered/Resolved]
  - Pain in extremity [Recovered/Resolved]
  - Back pain [Recovered/Resolved]
  - Fall [Recovered/Resolved]
  - Ligament sprain [Recovered/Resolved]
